FAERS Safety Report 15744800 (Version 1)
Quarter: 2018Q4

REPORT INFORMATION
  Report Type: Report from Study
  Country: JP (occurrence: JP)
  Receive Date: 20181220
  Receipt Date: 20181220
  Transmission Date: 20190205
  Serious: Yes (Other)
  Sender: FDA-Public Use
  Company Number: JP-ACTELION-A-CH2018-183791

PATIENT
  Age: 4 Month
  Sex: Male
  Weight: 5.38 kg

DRUGS (16)
  1. OPSUMIT [Suspect]
     Active Substance: MACITENTAN
     Indication: PULMONARY ARTERIAL HYPERTENSION
     Dosage: 0.5 MG, BID
     Route: 048
     Dates: start: 20180523
  2. SAMSCA [Concomitant]
     Active Substance: TOLVAPTAN
  3. REVATIO [Concomitant]
     Active Substance: SILDENAFIL CITRATE
     Dosage: UNK
     Dates: end: 20180813
  4. FUROSEMIDE. [Concomitant]
     Active Substance: FUROSEMIDE
  5. UPTRAVI [Concomitant]
     Active Substance: SELEXIPAG
  6. ADCIRCA [Concomitant]
     Active Substance: TADALAFIL
     Dosage: UNK
     Dates: start: 20180813
  7. EPOPROSTENOL ACT [Suspect]
     Active Substance: EPOPROSTENOL
     Dosage: 50 NG/KG, PER MIN
     Route: 042
     Dates: start: 20180604, end: 20180626
  8. EPOPROSTENOL ACT [Suspect]
     Active Substance: EPOPROSTENOL
     Dosage: 46 NG/KG, PER MIN
     Route: 042
     Dates: start: 20180627, end: 20180628
  9. EPOPROSTENOL ACT [Suspect]
     Active Substance: EPOPROSTENOL
     Dosage: 44 NG/KG, UNK
     Route: 042
     Dates: start: 20180629, end: 20180927
  10. EPOPROSTENOL ACT [Suspect]
     Active Substance: EPOPROSTENOL
     Indication: PULMONARY ARTERIAL HYPERTENSION
     Dosage: 2 NG/KG, PER MIN
     Route: 042
     Dates: start: 20180523, end: 20180524
  11. EPOPROSTENOL ACT [Suspect]
     Active Substance: EPOPROSTENOL
     Dosage: UNK
     Route: 042
     Dates: start: 20180524, end: 20180604
  12. ALDACTONE A [Concomitant]
     Active Substance: SPIRONOLACTONE
  13. HYDROCHLOROTHIAZIDE. [Concomitant]
     Active Substance: HYDROCHLOROTHIAZIDE
  14. OXYGEN. [Concomitant]
     Active Substance: OXYGEN
  15. NITRIC OXIDE. [Concomitant]
     Active Substance: NITRIC OXIDE
     Dosage: UNK
     Dates: end: 20180625
  16. WARFARIN [Concomitant]
     Active Substance: WARFARIN

REACTIONS (6)
  - Pleural effusion [Recovering/Resolving]
  - Transfusion [Unknown]
  - Anaemia [Recovering/Resolving]
  - Blood pressure decreased [Recovering/Resolving]
  - Thoracic cavity drainage [Unknown]
  - Pulmonary congestion [Unknown]

NARRATIVE: CASE EVENT DATE: 20180524
